FAERS Safety Report 15631990 (Version 2)
Quarter: 2019Q3

REPORT INFORMATION
  Report Type: Report from Study
  Country: US (occurrence: US)
  Receive Date: 20181119
  Receipt Date: 20190910
  Transmission Date: 20191004
  Serious: Yes (Death, Other)
  Sender: FDA-Public Use
  Company Number: US-REGENERON PHARMACEUTICALS, INC.-2018-45004

PATIENT

DRUGS (6)
  1. EYLEA [Suspect]
     Active Substance: AFLIBERCEPT
     Dosage: UNK, TOTAL OF 6 DOSES
     Dates: start: 20120801, end: 20120801
  2. EYLEA [Suspect]
     Active Substance: AFLIBERCEPT
     Indication: NEOVASCULAR AGE-RELATED MACULAR DEGENERATION
     Dosage: UNK, TOTAL OF 6 DOSES
     Dates: start: 20120418, end: 20140123
  3. EYLEA [Suspect]
     Active Substance: AFLIBERCEPT
     Dosage: UNK, TOTAL OF 6 DOSES
     Dates: start: 20120516, end: 20120516
  4. EYLEA [Suspect]
     Active Substance: AFLIBERCEPT
     Dosage: UNK, TOTAL OF 6 DOSES
     Dates: start: 20121205, end: 20121205
  5. EYLEA [Suspect]
     Active Substance: AFLIBERCEPT
     Dosage: UNK, TOTAL OF 6 DOSES
     Dates: start: 20121003, end: 20121003
  6. EYLEA [Suspect]
     Active Substance: AFLIBERCEPT
     Dosage: UNK, TOTAL OF 6 DOSES
     Dates: start: 20140123, end: 20140123

REACTIONS (1)
  - Death [Fatal]
